FAERS Safety Report 5674855-7 (Version None)
Quarter: 2008Q1

REPORT INFORMATION
  Report Type: 
  Country: None (occurrence: None)
  Receive Date: 20080320
  Receipt Date: 20080310
  Transmission Date: 20080703
  Serious: Yes (Hospitalization, Other)
  Sender: FDA-Public Use
  Company Number: US-PFIZER INC-2008014341

PATIENT
  Sex: Female

DRUGS (11)
  1. CELEBREX [Suspect]
  2. LYRICA [Suspect]
  3. OXYCONTIN [Suspect]
     Indication: PAIN
  4. PERCOCET [Suspect]
     Indication: PAIN
  5. ALTACE [Suspect]
  6. ZOLOFT [Concomitant]
  7. ADVAIR DISKUS 100/50 [Concomitant]
  8. NASONEX [Concomitant]
  9. COMBIVENT [Concomitant]
  10. OXYGEN [Concomitant]
  11. NEXIUM [Concomitant]

REACTIONS (15)
  - ABASIA [None]
  - ARTHRITIS [None]
  - ASTHENIA [None]
  - CONSTIPATION [None]
  - DECREASED APPETITE [None]
  - DIPLOPIA [None]
  - EXOSTOSIS [None]
  - HEPATITIS ACUTE [None]
  - HYPOACUSIS [None]
  - HYPOMETABOLISM [None]
  - HYPOTENSION [None]
  - LETHARGY [None]
  - PAIN [None]
  - PNEUMONIA ASPIRATION [None]
  - SOMNOLENCE [None]
